FAERS Safety Report 7124848-8 (Version None)
Quarter: 2010Q4

REPORT INFORMATION
  Report Type: 
  Country: None (occurrence: None)
  Receive Date: 20101123
  Receipt Date: 20101123
  Transmission Date: 20110411
  Serious: Yes (Other)
  Sender: FDA-Public Use
  Company Number: None

PATIENT
  Sex: Female
  Weight: 52.1637 kg

DRUGS (2)
  1. ACTONEL [Suspect]
     Indication: BACK PAIN
     Dosage: 35MG WEEKLY PO
     Route: 048
     Dates: start: 20090801, end: 20100830
  2. ACTONEL [Suspect]
     Indication: BONE DENSITY ABNORMAL
     Dosage: 35MG WEEKLY PO
     Route: 048
     Dates: start: 20090801, end: 20100830

REACTIONS (4)
  - BACK PAIN [None]
  - CONDITION AGGRAVATED [None]
  - DRUG INEFFECTIVE [None]
  - OSTEOPOROSIS [None]
